FAERS Safety Report 21737671 (Version 1)
Quarter: 2022Q4

REPORT INFORMATION
  Report Type: Spontaneous
  Country: FR (occurrence: FR)
  Receive Date: 20221216
  Receipt Date: 20221216
  Transmission Date: 20230112
  Serious: Yes (Hospitalization, Other)
  Sender: FDA-Public Use
  Company Number: FR-CHEPLA-2022010986

PATIENT
  Age: 50 Year
  Sex: Female

DRUGS (10)
  1. VALGANCICLOVIR [Suspect]
     Active Substance: VALGANCICLOVIR
     Indication: Prophylaxis
     Dosage: 900 MILLIGRAM, ONCE A DAY (900 MG/DAY)
     Route: 065
  2. VALGANCICLOVIR [Suspect]
     Active Substance: VALGANCICLOVIR
     Indication: Cytomegalovirus viraemia
     Dosage: 900 MILLIGRAM (3 WEEKS) 900 MG BID)
     Route: 065
  3. VALGANCICLOVIR [Suspect]
     Active Substance: VALGANCICLOVIR
     Dosage: 900 MILLIGRAM, ONCE A DAY (SECONDARY PROPHYLAXIS)
     Route: 065
  4. VALGANCICLOVIR [Suspect]
     Active Substance: VALGANCICLOVIR
     Dosage: 900 MILLIGRAM
     Route: 065
  5. GRANULOCYTE COLONY-STIMULATING FACTOR NOS [Suspect]
     Active Substance: GRANULOCYTE COLONY-STIMULATING FACTOR NOS
     Indication: Cytomegalovirus viraemia
     Dosage: UNK
     Route: 065
  6. GANCICLOVIR [Suspect]
     Active Substance: GANCICLOVIR
     Indication: Cytomegalovirus viraemia
     Dosage: 5 MILLIGRAM/KILOGRAM (5 MG/KG/12 H)
     Route: 042
  7. CYCLOSPORINE [Concomitant]
     Active Substance: CYCLOSPORINE
     Indication: Immunosuppression
     Dosage: UNK
     Route: 065
  8. EVEROLIMUS [Concomitant]
     Active Substance: EVEROLIMUS
     Indication: Immunosuppression
     Dosage: UNK
     Route: 065
  9. MYCOPHENOLATE MOFETIL [Concomitant]
     Active Substance: MYCOPHENOLATE MOFETIL
     Indication: Immunosuppression
     Dosage: UNK
     Route: 065
  10. TACROLIMUS [Concomitant]
     Active Substance: TACROLIMUS
     Indication: Immunosuppression
     Dosage: UNK
     Route: 065

REACTIONS (8)
  - Renal failure [Unknown]
  - Neutropenia [Unknown]
  - Cytomegalovirus infection reactivation [Recovered/Resolved]
  - Norovirus infection [Unknown]
  - Dehydration [Unknown]
  - Diarrhoea [Unknown]
  - Drug resistance [Recovered/Resolved]
  - Product use in unapproved indication [Recovered/Resolved]
